FAERS Safety Report 6299351-8 (Version None)
Quarter: 2009Q3

REPORT INFORMATION
  Report Type: 
  Country: None (occurrence: None)
  Receive Date: 20090806
  Receipt Date: 20090727
  Transmission Date: 20100115
  Serious: Yes (Hospitalization)
  Sender: FDA-Public Use
  Company Number: JP-ROCHE-637744

PATIENT
  Sex: Female
  Weight: 41 kg

DRUGS (13)
  1. PEGASYS [Suspect]
     Indication: HEPATITIS C
     Dosage: UNITS: MCG.
     Route: 058
     Dates: start: 20090224, end: 20090407
  2. PEGASYS [Suspect]
     Route: 058
     Dates: start: 20090421, end: 20090519
  3. PEGASYS [Suspect]
     Route: 058
     Dates: start: 20090707
  4. ADALAT [Concomitant]
     Dosage: FORM: SUSTAINED RELEASE TABLET.
     Route: 048
     Dates: start: 20080501
  5. DIOVAN [Concomitant]
     Route: 048
     Dates: start: 20080805
  6. FRANDOL [Concomitant]
     Dosage: FORM: TAPE.
     Route: 062
     Dates: start: 20080301
  7. DEPAS [Concomitant]
     Route: 048
  8. ROHYPNOL [Concomitant]
     Route: 048
     Dates: start: 20080301
  9. ONEALFA [Concomitant]
     Route: 048
     Dates: start: 20090514
  10. RIVOTRIL [Concomitant]
     Route: 048
     Dates: start: 20090514
  11. KINEDAK [Concomitant]
     Route: 048
     Dates: start: 20090612
  12. EPOGIN S [Concomitant]
     Dosage: DOSE: 3000 UT.
     Route: 042
     Dates: start: 20080329
  13. NOVOLIN R [Concomitant]
     Dosage: DOSE: 6 UT.
     Route: 058
     Dates: start: 20080329

REACTIONS (1)
  - ATRIOVENTRICULAR BLOCK COMPLETE [None]
